FAERS Safety Report 6916540-7 (Version None)
Quarter: 2010Q3

REPORT INFORMATION
  Report Type: 
  Country: None (occurrence: None)
  Receive Date: 20100810
  Receipt Date: 20100805
  Transmission Date: 20110219
  Serious: Yes (Other)
  Sender: FDA-Public Use
  Company Number: US-BRISTOL-MYERS SQUIBB COMPANY-15226475

PATIENT
  Age: 58 Year
  Sex: Female
  Weight: 112 kg

DRUGS (10)
  1. COUMADIN [Suspect]
     Dosage: TAKE A TABLET AND A HALF
  2. CLONIDINE [Concomitant]
  3. ASPIRIN [Concomitant]
  4. TRAMADOL HYDROCHLORIDE [Concomitant]
     Indication: PAIN
     Dosage: 1 DF:1 TABLET AS NEEDED
  5. FUROSEMIDE [Concomitant]
     Dosage: 1 DF:1 TAB
  6. LISINOPRIL [Concomitant]
  7. SPIRONOLACTONE [Concomitant]
  8. AMLODIPINE [Concomitant]
     Dosage: 10MG 2 DF:2 TABLETS ONCE A DAY
  9. LANTUS [Concomitant]
  10. NOVOLOG [Concomitant]

REACTIONS (4)
  - CONTUSION [None]
  - THROMBOSIS [None]
  - TRAUMATIC FRACTURE [None]
  - VISUAL ACUITY REDUCED [None]
